FAERS Safety Report 25567351 (Version 1)
Quarter: 2025Q3

REPORT INFORMATION
  Report Type: Spontaneous
  Country: US (occurrence: None)
  Receive Date: 20250716
  Receipt Date: 20250716
  Transmission Date: 20251021
  Serious: Yes (Life-Threatening, Hospitalization)
  Sender: FDA-CTU
  Company Number: None

PATIENT
  Age: 70 Year
  Sex: Female
  Weight: 70.4 kg

DRUGS (1)
  1. FOSPHENYTOIN SODIUM [Suspect]
     Active Substance: FOSPHENYTOIN SODIUM
     Indication: Seizure
     Route: 042

REACTIONS (4)
  - Bradycardia [None]
  - Cardiac arrest [None]
  - Infusion related reaction [None]
  - Cardio-respiratory arrest [None]

NARRATIVE: CASE EVENT DATE: 20250714
